FAERS Safety Report 13490529 (Version 3)
Quarter: 2017Q2

REPORT INFORMATION
  Report Type: Report from Study
  Country: NI (occurrence: NI)
  Receive Date: 20170427
  Receipt Date: 20170516
  Transmission Date: 20170830
  Serious: Yes (Hospitalization)
  Sender: FDA-Public Use
  Company Number: NI-EMD SERONO-E2B_80066110

PATIENT
  Age: 7 Year

DRUGS (1)
  1. SAIZEN [Suspect]
     Active Substance: SOMATROPIN
     Indication: GROWTH HORMONE DEFICIENCY
     Route: 058
     Dates: start: 20161205, end: 20170424

REACTIONS (1)
  - Osteochondrosis [Unknown]

NARRATIVE: CASE EVENT DATE: 20170420
